FAERS Safety Report 20638712 (Version 2)
Quarter: 2022Q1

REPORT INFORMATION
  Report Type: Spontaneous
  Country: US (occurrence: US)
  Receive Date: 20220325
  Receipt Date: 20220331
  Transmission Date: 20220423
  Serious: No
  Sender: FDA-Public Use
  Company Number: US-ORGANON-O2203USA002066

PATIENT
  Sex: Female

DRUGS (2)
  1. FOLLISTIM AQ [Suspect]
     Active Substance: FOLLITROPIN
     Dosage: 150 INTERNATIONAL UNIT
  2. FOLLISTIM AQ [Suspect]
     Active Substance: FOLLITROPIN

REACTIONS (4)
  - Product packaging quantity issue [Unknown]
  - Poor quality device used [Unknown]
  - Product dose omission issue [Unknown]
  - No adverse event [Unknown]

NARRATIVE: CASE EVENT DATE: 20220317
